FAERS Safety Report 5412545-6 (Version None)
Quarter: 2007Q3

REPORT INFORMATION
  Report Type: 
  Country: None (occurrence: None)
  Receive Date: 20070813
  Receipt Date: 20070806
  Transmission Date: 20080115
  Serious: Yes (Other)
  Sender: FDA-Public Use
  Company Number: B0482860A

PATIENT
  Age: 18 Year
  Sex: Female

DRUGS (1)
  1. RANITIDINE HYDROCHLORIDE [Suspect]
     Indication: TONSILLECTOMY
     Route: 065
     Dates: start: 20070724

REACTIONS (2)
  - ANAPHYLACTIC SHOCK [None]
  - PHARMACEUTICAL PRODUCT COMPLAINT [None]
